FAERS Safety Report 9248876 (Version 2)
Quarter: 2013Q2

REPORT INFORMATION
  Report Type: Spontaneous
  Country: FR (occurrence: FR)
  Receive Date: 20130423
  Receipt Date: 20130530
  Transmission Date: 20140414
  Serious: Yes (Death)
  Sender: FDA-Public Use
  Company Number: FR-ROCHE-1217111

PATIENT
  Sex: 0

DRUGS (11)
  1. LUCENTIS [Suspect]
     Indication: AGE-RELATED MACULAR DEGENERATION
     Route: 050
     Dates: start: 20111214
  2. LUCENTIS [Suspect]
     Route: 050
     Dates: start: 20130115
  3. ALTEIS [Concomitant]
  4. TRIVASTAL [Concomitant]
  5. TAHOR [Concomitant]
  6. MOPRAL (FRANCE) [Concomitant]
  7. IXPRIM [Concomitant]
  8. PREVISCAN (FRANCE) [Concomitant]
  9. LASILIX [Concomitant]
  10. QVAR [Concomitant]
  11. ALPHAGAN [Concomitant]

REACTIONS (1)
  - Pulmonary oedema [Fatal]
